FAERS Safety Report 5981308-5 (Version None)
Quarter: 2008Q4

REPORT INFORMATION
  Report Type: 
  Country: None (occurrence: None)
  Receive Date: 20081205
  Receipt Date: 20081126
  Transmission Date: 20090506
  Serious: Yes (Hospitalization)
  Sender: FDA-Public Use
  Company Number: US-AMGEN-KDL308001

PATIENT
  Sex: Female
  Weight: 75.8 kg

DRUGS (9)
  1. KINERET [Suspect]
     Indication: RHEUMATOID ARTHRITIS
     Route: 058
     Dates: start: 20030101
  2. METHOTREXATE [Concomitant]
     Route: 048
     Dates: start: 20050810
  3. TOPROL-XL [Concomitant]
     Dates: start: 20070523
  4. LOTREL [Concomitant]
     Dates: start: 20050810
  5. VYTORIN [Concomitant]
     Dates: start: 20050801
  6. CELEBREX [Concomitant]
     Dates: start: 20060830
  7. LORAZEPAM [Concomitant]
     Dates: start: 20051207
  8. VALTREX [Concomitant]
     Dates: start: 20051207
  9. ACTONEL [Concomitant]

REACTIONS (7)
  - ABDOMINAL PAIN UPPER [None]
  - ABSCESS [None]
  - BRONCHITIS [None]
  - DIVERTICULUM [None]
  - RHEUMATOID ARTHRITIS [None]
  - SKIN INFECTION [None]
  - WEIGHT INCREASED [None]
